FAERS Safety Report 9414489 (Version 1)
Quarter: 2013Q3

REPORT INFORMATION
  Report Type: Spontaneous
  Country: US (occurrence: GB)
  Receive Date: 20130717
  Receipt Date: 20130717
  Transmission Date: 20140515
  Serious: Yes (Other)
  Sender: FDA-Public Use
  Company Number: SYM-2013-06287

PATIENT
  Age: 17 Year
  Sex: Male

DRUGS (17)
  1. ACYCLOVIR [Suspect]
     Indication: PROPHYLAXIS
  2. PREDNISOLONE [Suspect]
     Indication: BURKITT^S LYMPHOMA
  3. RITUXIMAB [Suspect]
     Indication: BURKITT^S LYMPHOMA
  4. DOXORUBICIN [Suspect]
     Indication: BURKITT^S LYMPHOMA
  5. VINCRISTINE [Suspect]
     Indication: BURKITT^S LYMPHOMA
  6. CYTARABINE [Suspect]
     Indication: BURKITT^S LYMPHOMA
  7. ETOPOSIDE [Suspect]
     Indication: BURKITT^S LYMPHOMA
  8. THIOGUANINE [Suspect]
     Indication: BURKITT^S LYMPHOMA
  9. MERCAPTOPURINE [Suspect]
     Indication: BURKITT^S LYMPHOMA
  10. METHOTREXATE [Suspect]
     Indication: BURKITT^S LYMPHOMA
     Dosage: 6 DOSES ADMINISTERED TO PATIENT.
     Route: 037
  11. TACROLIMUS [Suspect]
     Indication: IMMUNOSUPPRESSION
  12. CO-TRIMOXAZOLE [Suspect]
     Indication: PROPHYLAXIS
  13. ITRACONAZOLE [Suspect]
     Indication: PRODUCT USED FOR UNKNOWN INDICATION
  14. CAELYX [Suspect]
     Indication: PRODUCT USED FOR UNKNOWN INDICATION
  15. CYCLOPHOSPHAMIDE (CYCLOPHOSPHAMIDE) [Concomitant]
  16. VINCRISTINE SULPHATE (VINCRISTINE SULPHATE) [Concomitant]
  17. PREDNISONE (PREDNISONE)(PREDNISONE) [Concomitant]

REACTIONS (7)
  - Weight decreased [None]
  - Malaise [None]
  - Lymphadenopathy [None]
  - Night sweats [None]
  - Abdominal pain [None]
  - Neutropenia [None]
  - Spleen disorder [None]
